FAERS Safety Report 4555121-X (Version None)
Quarter: 2004Q4

REPORT INFORMATION
  Report Type: 
  Country: None (occurrence: None)
  Receive Date: 20041217
  Receipt Date: 20040816
  Transmission Date: 20050328
  Serious: No
  Sender: FDA-Public Use
  Company Number: 2004-BP-05581BP

PATIENT
  Age: 76 Year
  Sex: Male
  Weight: 59.9 kg

DRUGS (7)
  1. SPIRIVA [Suspect]
     Indication: CHRONIC OBSTRUCTIVE AIRWAYS DISEASE
     Dosage: (18 MCG), IH
     Route: 055
     Dates: start: 20040614, end: 20040701
  2. COMBIVENT [Concomitant]
  3. FLOVENT [Concomitant]
  4. TOPREL (METOPROLOL SUCCINATE) [Concomitant]
  5. TIZANIDINE [Concomitant]
  6. PREDNISONE [Concomitant]
  7. LORZAPAN [Concomitant]

REACTIONS (1)
  - THROMBOCYTOPENIA [None]
